FAERS Safety Report 12672206 (Version 6)
Quarter: 2018Q2

REPORT INFORMATION
  Report Type: Report from Study
  Country: CA (occurrence: CA)
  Receive Date: 20160822
  Receipt Date: 20180621
  Transmission Date: 20180711
  Serious: Yes (Hospitalization, Other)
  Sender: FDA-Public Use
  Company Number: CA-AMGEN-CANSL2015017076

PATIENT
  Age: 88 Year
  Sex: Female
  Weight: 38.5 kg

DRUGS (23)
  1. VITAMIN D [Concomitant]
     Active Substance: CHOLECALCIFEROL
     Dosage: 2000 MG, BID
  2. CELEXA [Concomitant]
     Active Substance: CITALOPRAM HYDROBROMIDE
  3. CLONAZEPAM. [Concomitant]
     Active Substance: CLONAZEPAM
     Dosage: 0.2 MG, UNK
  4. FUROSEMIDE. [Concomitant]
     Active Substance: FUROSEMIDE
  5. MURO 128 [Concomitant]
     Active Substance: SODIUM CHLORIDE
     Indication: CORNEAL DISORDER
     Dosage: UNK
  6. VITAMIN D [Concomitant]
     Active Substance: CHOLECALCIFEROL
     Dosage: 2000 MG, UNK
  7. VITAMIN B12 [Concomitant]
     Active Substance: CYANOCOBALAMIN
     Dosage: UNK UNK, QMO
  8. NITROSTAT [Concomitant]
     Active Substance: NITROGLYCERIN
     Dosage: UNK UNK, AS NECESSARY
  9. SYSTANE (HYPROMELLOSE 2910 (4000 MPA.S)) [Concomitant]
     Active Substance: HYPROMELLOSE 2910 (4000 MPA.S)
     Indication: DRY EYE
     Route: 047
  10. PROLIA [Suspect]
     Active Substance: DENOSUMAB
     Indication: OSTEOPOROSIS POSTMENOPAUSAL
     Dosage: 60 MG/ML, Q6MO
     Route: 058
     Dates: start: 20150126
  11. CALCIUM [Concomitant]
     Active Substance: CALCIUM
     Dosage: 1300 MG, QD
  12. SENOKOT [Concomitant]
     Active Substance: SENNOSIDES
     Dosage: UNK, 3 TIMES/WK
  13. GLUCOSAMINE CHONDROITIN [Concomitant]
     Active Substance: CHONDROITIN SULFATE (BOVINE)\GLUCOSAMINE HYDROCHLORIDE
     Dosage: 900 MG, UNK
  14. PANTOLOC [Concomitant]
     Active Substance: PANTOPRAZOLE SODIUM
     Indication: GASTRIC DISORDER
     Dosage: 40 MG, BID
  15. ASA [Concomitant]
     Active Substance: ASPIRIN
     Dosage: 81 MG, UNK
  16. TYLENOL [Concomitant]
     Active Substance: ACETAMINOPHEN
     Indication: ARTHRITIS
     Dosage: 222 UNK, UNK
  17. SOFLAX [Concomitant]
     Active Substance: DOCUSATE
  18. LYRICA [Concomitant]
     Active Substance: PREGABALIN
     Dosage: 2, Q4H
  19. IRON [Concomitant]
     Active Substance: IRON
  20. FENTANYL. [Concomitant]
     Active Substance: FENTANYL
     Indication: PAIN
     Dosage: 12.5 MG, UNK, Q72H
  21. EZETROL [Concomitant]
     Active Substance: EZETIMIBE
  22. MAGNESIUM [Concomitant]
     Active Substance: MAGNESIUM
     Dosage: UNK
  23. CLONAZEPAM CEVALLOS [Concomitant]
     Dosage: 2 MG, QHS

REACTIONS (41)
  - Leukaemia [Unknown]
  - Pelvic fracture [Not Recovered/Not Resolved]
  - Nerve injury [Unknown]
  - Insomnia [Unknown]
  - Petechiae [Unknown]
  - Blood pressure abnormal [Not Recovered/Not Resolved]
  - Calcinosis [Unknown]
  - General physical condition abnormal [Not Recovered/Not Resolved]
  - Skin atrophy [Unknown]
  - Anaphylactic shock [Unknown]
  - Body height decreased [Unknown]
  - Bursitis [Unknown]
  - Arthritis [Unknown]
  - Bone density decreased [Unknown]
  - Arthralgia [Unknown]
  - Scoliosis [Unknown]
  - Weight decreased [Unknown]
  - Anaemia [Unknown]
  - Dizziness [Unknown]
  - Rib fracture [Not Recovered/Not Resolved]
  - Hand fracture [Not Recovered/Not Resolved]
  - Renal disorder [Unknown]
  - Internal haemorrhage [Unknown]
  - Terminal state [Unknown]
  - Blindness [Unknown]
  - Scab [Unknown]
  - Pruritus [Not Recovered/Not Resolved]
  - Influenza like illness [Recovered/Resolved]
  - Myelofibrosis [Unknown]
  - Shock [Unknown]
  - Fall [Unknown]
  - Blister [Recovered/Resolved]
  - Rash generalised [Not Recovered/Not Resolved]
  - Blood creatinine increased [Unknown]
  - Incontinence [Unknown]
  - Drug hypersensitivity [Unknown]
  - Spinal fracture [Not Recovered/Not Resolved]
  - Papule [Unknown]
  - Malabsorption [Unknown]
  - Muscle spasms [Unknown]
  - Epistaxis [Not Recovered/Not Resolved]

NARRATIVE: CASE EVENT DATE: 2015
